FAERS Safety Report 6718032-7 (Version None)
Quarter: 2010Q2

REPORT INFORMATION
  Report Type: 
  Country: None (occurrence: None)
  Receive Date: 20100510
  Receipt Date: 20100428
  Transmission Date: 20101027
  Serious: Yes (Other)
  Sender: FDA-Public Use
  Company Number: PHEH2010US03342

PATIENT
  Sex: Female

DRUGS (5)
  1. ZOMETA [Suspect]
     Indication: MULTIPLE MYELOMA
     Dosage: 3 (UNIT UNSPECIFIED) UNITS EVERY 4 WEEKS
     Route: 042
     Dates: start: 20040801, end: 20100210
  2. DILAUDID [Concomitant]
     Dosage: UNK, UNK
  3. FENTANYL [Concomitant]
     Dosage: UNK, UNK
  4. LYRICA [Concomitant]
     Dosage: UNK, UNK
  5. REVLIMID [Concomitant]
     Dosage: 5 MG THREE WEEKS OUT OF FOUR

REACTIONS (9)
  - BLOOD GLUCOSE INCREASED [None]
  - BONE DISORDER [None]
  - CAROTIDYNIA [None]
  - GINGIVAL ULCERATION [None]
  - KYPHOSIS [None]
  - NEUROPATHY PERIPHERAL [None]
  - OSTEONECROSIS OF JAW [None]
  - PAIN IN JAW [None]
  - TENDERNESS [None]
